FAERS Safety Report 25075582 (Version 1)
Quarter: 2025Q1

REPORT INFORMATION
  Report Type: Spontaneous
  Country: US (occurrence: US)
  Receive Date: 20250313
  Receipt Date: 20250313
  Transmission Date: 20250409
  Serious: Yes (Hospitalization)
  Sender: LEXICON PHARMACEUTICALS
  Company Number: US-LEX-000692

PATIENT
  Sex: Female

DRUGS (10)
  1. INPEFA [Suspect]
     Active Substance: SOTAGLIFLOZIN
     Indication: Cardiac disorder
     Route: 048
     Dates: start: 20240803
  2. BUMETANIDE [Concomitant]
     Active Substance: BUMETANIDE
  3. SPIRONOLACTONE [Concomitant]
     Active Substance: SPIRONOLACTONE
  4. CARVEDILOL [Concomitant]
     Active Substance: CARVEDILOL
  5. VITAMIN D [Concomitant]
     Active Substance: VITAMIN D NOS
  6. VITAMIN B [Concomitant]
     Active Substance: VITAMIN B
  7. ENTRESTO [Concomitant]
     Active Substance: SACUBITRIL\VALSARTAN
  8. ELIQUIS [Concomitant]
     Active Substance: APIXABAN
  9. SYNTHROID [Concomitant]
     Active Substance: LEVOTHYROXINE SODIUM
  10. POTASSIUM CHLORIDE [Concomitant]
     Active Substance: POTASSIUM CHLORIDE

REACTIONS (3)
  - Pulmonary oedema [Unknown]
  - Oedema peripheral [Unknown]
  - Drug ineffective [Unknown]

NARRATIVE: CASE EVENT DATE: 20250101
